FAERS Safety Report 6762790-2 (Version None)
Quarter: 2010Q2

REPORT INFORMATION
  Report Type: 
  Country: None (occurrence: None)
  Receive Date: 20100609
  Receipt Date: 20100531
  Transmission Date: 20101027
  Serious: Yes (Hospitalization)
  Sender: FDA-Public Use
  Company Number: B0659397A

PATIENT
  Sex: Male

DRUGS (2)
  1. AUGMENTIN '125' [Suspect]
     Indication: SCARLET FEVER
     Dosage: 8ML PER DAY
     Route: 048
     Dates: start: 20100501, end: 20100508
  2. TINSET [Concomitant]
     Route: 048
     Dates: start: 20100507, end: 20100507

REACTIONS (2)
  - OEDEMA PERIPHERAL [None]
  - RASH [None]
